FAERS Safety Report 15379528 (Version 1)
Quarter: 2018Q3

REPORT INFORMATION
  Report Type: Spontaneous
  Country: US (occurrence: US)
  Receive Date: 20180906
  Receipt Date: 20180906
  Transmission Date: 20181010
  Serious: Yes (Other)
  Sender: FDA-Public Use
  Company Number: None

PATIENT
  Age: 63 Year
  Sex: Female
  Weight: 84 kg

DRUGS (14)
  1. AMLODIPINE [Concomitant]
     Active Substance: AMLODIPINE BESYLATE
  2. METHOTREXATE. [Concomitant]
     Active Substance: METHOTREXATE
  3. OCTAGAM IMMUNE GLOBULIN (HUMAN) [Suspect]
     Active Substance: HUMAN IMMUNOGLOBULIN G
     Indication: HYPOGAMMAGLOBULINAEMIA
     Route: 042
     Dates: start: 20180226, end: 20180618
  4. OCTAGAM IMMUNE GLOBULIN (HUMAN) [Suspect]
     Active Substance: HUMAN IMMUNOGLOBULIN G
     Indication: HYPOGAMMAGLOBULINAEMIA
     Dosage: ?          OTHER FREQUENCY:EVERY 4 WEEKS;?
     Route: 042
     Dates: start: 20180226, end: 20180618
  5. PRAVASTATIN. [Concomitant]
     Active Substance: PRAVASTATIN
  6. ROPINIROLE. [Concomitant]
     Active Substance: ROPINIROLE
  7. ANASTROZOLE. [Concomitant]
     Active Substance: ANASTROZOLE
  8. ORENCIA [Concomitant]
     Active Substance: ABATACEPT
  9. PAROXETINE. [Concomitant]
     Active Substance: PAROXETINE
  10. BIOTIN [Concomitant]
     Active Substance: BIOTIN
  11. OSCAL + D [Concomitant]
  12. METOPROLOL. [Concomitant]
     Active Substance: METOPROLOL
  13. FOLIC ACID. [Concomitant]
     Active Substance: FOLIC ACID
  14. ROPINIROLE. [Concomitant]
     Active Substance: ROPINIROLE

REACTIONS (2)
  - Hepatitis A [None]
  - Hepatitis B [None]

NARRATIVE: CASE EVENT DATE: 20180705
